FAERS Safety Report 14987663 (Version 2)
Quarter: 2018Q3

REPORT INFORMATION
  Report Type: Spontaneous
  Country: BR (occurrence: BR)
  Receive Date: 20180608
  Receipt Date: 20180713
  Transmission Date: 20181010
  Serious: Yes (Other)
  Sender: FDA-Public Use
  Company Number: PHHY2018BR010266

PATIENT
  Sex: Female
  Weight: 66 kg

DRUGS (2)
  1. EXFORGE HCT [Suspect]
     Active Substance: AMLODIPINE BESYLATE\HYDROCHLOROTHIAZIDE\VALSARTAN
     Dosage: 1 TABLET IN THE MORNING AND WHEN BLOOD PRESSURE ALTERED USED IT TWICE A DAY)
     Route: 048
  2. EXFORGE HCT [Suspect]
     Active Substance: AMLODIPINE BESYLATE\HYDROCHLOROTHIAZIDE\VALSARTAN
     Indication: HYPERTENSION
     Dosage: 1 DF, QD (IN THE MORNING, 5 MG OF AMLODIPINE, 160 MG OF VALSARTAN AND HYDROCHLOROTHIAZIDE 25 MG)
     Route: 048

REACTIONS (4)
  - Product colour issue [Unknown]
  - Blood pressure abnormal [Recovering/Resolving]
  - Cataract [Unknown]
  - Hypertension [Recovering/Resolving]
